FAERS Safety Report 25884869 (Version 1)
Quarter: 2025Q4

REPORT INFORMATION
  Report Type: Spontaneous
  Country: US (occurrence: US)
  Receive Date: 20251006
  Receipt Date: 20251006
  Transmission Date: 20260117
  Serious: No
  Sender: RANBAXY
  Company Number: US-SUN PHARMACEUTICAL INDUSTRIES LTD-2024R1-475737

PATIENT
  Sex: Male

DRUGS (1)
  1. CEQUA [Suspect]
     Active Substance: CYCLOSPORINE
     Indication: Dry eye
     Dosage: 1 DROP, BID (ONE DROP IN EACH EYE TWICE A DAY)
     Route: 047
     Dates: start: 202405, end: 20241018

REACTIONS (2)
  - Product dose omission issue [Unknown]
  - Product use issue [Unknown]
